FAERS Safety Report 25333452 (Version 2)
Quarter: 2025Q2

REPORT INFORMATION
  Report Type: Spontaneous
  Country: US (occurrence: US)
  Receive Date: 20250520
  Receipt Date: 20250528
  Transmission Date: 20250716
  Serious: No
  Sender: ELI LILLY AND COMPANY
  Company Number: US-ELI_LILLY_AND_COMPANY-US202505009038

PATIENT
  Age: 69 Year
  Sex: Female

DRUGS (5)
  1. TADALAFIL [Interacting]
     Active Substance: TADALAFIL
     Indication: Product used for unknown indication
     Route: 065
  2. REMODULIN [Suspect]
     Active Substance: TREPROSTINIL
     Indication: Pulmonary arterial hypertension
     Route: 058
     Dates: start: 202103
  3. NITROGLYCERIN [Interacting]
     Active Substance: NITROGLYCERIN
     Indication: Dyspnoea
     Route: 065
     Dates: start: 202504
  4. NITROGLYCERIN [Interacting]
     Active Substance: NITROGLYCERIN
     Indication: Dyspnoea exertional
  5. NITROGLYCERIN [Interacting]
     Active Substance: NITROGLYCERIN
     Indication: Bendopnoea

REACTIONS (7)
  - Bendopnoea [Unknown]
  - Pain in jaw [Unknown]
  - Drug interaction [Unknown]
  - Fatigue [Unknown]
  - Dyspnoea exertional [Unknown]
  - Dyspnoea [Unknown]
  - Hypotension [Unknown]
